FAERS Safety Report 9421023 (Version 1)
Quarter: 2013Q3

REPORT INFORMATION
  Report Type: Spontaneous
  Country: US (occurrence: US)
  Receive Date: 20130725
  Receipt Date: 20130725
  Transmission Date: 20140515
  Serious: Yes (Hospitalization, Other)
  Sender: FDA-Public Use
  Company Number: US-COVIDIEN/TYCO HEALTHCARE/MALLINCKRODT-T201303774

PATIENT
  Age: 48 Year
  Sex: Male

DRUGS (17)
  1. METHADOSE [Suspect]
     Indication: PAIN
     Dosage: 30 MG, Q 12HRS
     Route: 048
  2. METHADOSE [Suspect]
     Indication: BREAKTHROUGH PAIN
     Dosage: 15 MG, Q 3 HRS, PRN
     Route: 048
  3. METHADOSE [Suspect]
     Dosage: 50 MG, Q 12HRS
     Route: 048
  4. METHADOSE [Suspect]
     Dosage: 20 MG, Q 3 HRS, PRN
     Route: 048
  5. METHADOSE [Suspect]
     Dosage: 50 MG, TID
     Route: 048
  6. METHADOSE [Suspect]
     Dosage: 30 MG, Q 3 HRS, PRN
     Route: 048
  7. FLUOXETINE [Suspect]
     Indication: PRODUCT USED FOR UNKNOWN INDICATION
     Dosage: 20 MG, QD
     Route: 048
  8. DEXAMETHASONE [Suspect]
     Indication: PAIN
     Dosage: 4 MG, BID
     Route: 048
  9. DEXAMETHASONE [Suspect]
     Dosage: 4 MG, QD
     Route: 050
  10. METHADONE [Concomitant]
     Indication: PAIN
     Dosage: 15 MG, TID, PRN
     Route: 048
  11. HYDROMORPHONE [Concomitant]
     Dosage: UNK
     Route: 065
  12. POTASSIUM CHLORIDE [Concomitant]
     Dosage: 20 MEQ, QD
     Route: 050
  13. BMX SUSPENSION (DIPHENHYDRAMINE, MAALOX, VISCOUS LIDOCAINE) [Concomitant]
     Dosage: 10 ML, QID
     Route: 048
  14. ONDANSETRON [Concomitant]
     Dosage: 8 MG, Q 8 HRS, PRN
     Route: 060
  15. LEVOTHYROXINE [Concomitant]
     Dosage: 25 UG, QD
     Route: 048
  16. NYSTATIN [Concomitant]
     Dosage: 5 ML, BID, PRN
     Route: 048
  17. ALPRAZOLAM [Concomitant]
     Indication: ANXIETY
     Dosage: 0.5 MG, Q 6 HRS, PRN

REACTIONS (3)
  - Toxicity to various agents [Recovered/Resolved]
  - Cellulitis [Unknown]
  - Drug interaction [Unknown]
